FAERS Safety Report 13155390 (Version 2)
Quarter: 2017Q1

REPORT INFORMATION
  Report Type: Spontaneous
  Country: FR (occurrence: FR)
  Receive Date: 20170126
  Receipt Date: 20170131
  Transmission Date: 20170428
  Serious: Yes (Other)
  Sender: FDA-Public Use
  Company Number: FR-ACORDA-ACO_128630_2016

PATIENT
  Age: 42 Year
  Sex: Male
  Weight: 74 kg

DRUGS (2)
  1. QUTENZA [Suspect]
     Active Substance: CAPSAICIN
     Indication: COMPLEX REGIONAL PAIN SYNDROME
     Dosage: UNK, UNKNOWN FREQ.
     Route: 065
     Dates: start: 20160420, end: 20160420
  2. QUTENZA [Suspect]
     Active Substance: CAPSAICIN
     Dosage: 1 DF, UNK
     Route: 003
     Dates: start: 20160601, end: 20160601

REACTIONS (4)
  - Proteinuria [Unknown]
  - Renal infarct [Unknown]
  - Intentional product misuse [Unknown]
  - Hypertension [Not Recovered/Not Resolved]

NARRATIVE: CASE EVENT DATE: 20160601
